FAERS Safety Report 7770337-7 (Version None)
Quarter: 2011Q3

REPORT INFORMATION
  Report Type: 
  Country: None (occurrence: None)
  Receive Date: 20110922
  Receipt Date: 20101216
  Transmission Date: 20111222
  Serious: Yes (Other)
  Sender: FDA-Public Use
  Company Number: GB-ASTRAZENECA-2010SE59707

PATIENT
  Age: 35 Year
  Sex: Female
  Weight: 56.7 kg

DRUGS (3)
  1. SEROQUEL [Suspect]
     Indication: BIPOLAR DISORDER
     Route: 048
  2. ZOLOFT [Concomitant]
  3. SEROQUEL [Suspect]
     Indication: MANIA
     Route: 048

REACTIONS (4)
  - INSOMNIA [None]
  - BIPOLAR DISORDER [None]
  - SUICIDAL IDEATION [None]
  - DRUG DOSE OMISSION [None]
